FAERS Safety Report 5421196-9 (Version None)
Quarter: 2007Q3

REPORT INFORMATION
  Report Type: 
  Country: None (occurrence: None)
  Receive Date: 20070719
  Receipt Date: 20070514
  Transmission Date: 20080115
  Serious: Yes (Other)
  Sender: FDA-Public Use
  Company Number: HQWYE231816MAY07

PATIENT
  Age: 51 Year
  Sex: Female
  Weight: 59.02 kg

DRUGS (2)
  1. ADVIL PM [Suspect]
     Indication: INSOMNIA
     Dosage: TWO CAPLETS ONE TIME, ORAL
     Route: 048
     Dates: start: 20070513, end: 20070513
  2. ADVIL PM [Suspect]
     Indication: PAIN
     Dosage: TWO CAPLETS ONE TIME, ORAL
     Route: 048
     Dates: start: 20070513, end: 20070513

REACTIONS (1)
  - RESTLESSNESS [None]
